FAERS Safety Report 22178769 (Version 1)
Quarter: 2023Q2

REPORT INFORMATION
  Report Type: Spontaneous
  Country: US (occurrence: US)
  Receive Date: 20230405
  Receipt Date: 20230405
  Transmission Date: 20230721
  Serious: No
  Sender: FDA-Public Use
  Company Number: US-009507513-2303USA007326

PATIENT
  Age: 63 Year
  Sex: Female

DRUGS (1)
  1. KEYTRUDA [Suspect]
     Active Substance: PEMBROLIZUMAB
     Indication: Triple negative breast cancer
     Dosage: ONCE WEEKLY
     Route: 042
     Dates: start: 202101, end: 202209

REACTIONS (7)
  - Scar [Not Recovered/Not Resolved]
  - Drug intolerance [Unknown]
  - Brain fog [Unknown]
  - Peripheral swelling [Unknown]
  - Skin lesion [Not Recovered/Not Resolved]
  - Drug eruption [Not Recovered/Not Resolved]
  - Inappropriate schedule of product administration [Unknown]

NARRATIVE: CASE EVENT DATE: 20210101
